FAERS Safety Report 7030643-0 (Version None)
Quarter: 2010Q4

REPORT INFORMATION
  Report Type: 
  Country: None (occurrence: None)
  Receive Date: 20101006
  Receipt Date: 20101001
  Transmission Date: 20110411
  Serious: Yes (Hospitalization)
  Sender: FDA-Public Use
  Company Number: CH-ROCHE-730664

PATIENT
  Sex: Male
  Weight: 106 kg

DRUGS (1)
  1. VALGANCICLOVIR HCL [Suspect]
     Route: 048
     Dates: start: 20070717

REACTIONS (1)
  - INCISIONAL HERNIA [None]
